FAERS Safety Report 9538739 (Version 2)
Quarter: 2013Q4

REPORT INFORMATION
  Report Type: Spontaneous
  Country: US (occurrence: US)
  Receive Date: 20130920
  Receipt Date: 20131219
  Transmission Date: 20140711
  Serious: Yes (Death)
  Sender: FDA-Public Use
  Company Number: PHEH2013US019717

PATIENT
  Sex: Male

DRUGS (15)
  1. MYFORTIC [Suspect]
     Dosage: 360 MG, UNK
     Dates: start: 20130219
  2. NEORAL [Suspect]
     Dosage: 75 MG, UNK
     Dates: start: 20130802
  3. FUROSEMIDE [Concomitant]
     Dosage: UNK UKN, UNK
  4. ACETYLSALICYLIC ACID [Concomitant]
     Dosage: 325 MG, UNK
  5. MULTI-VIT [Concomitant]
     Dosage: UNK UKN, UNK
  6. METOPROLOL [Concomitant]
     Dosage: UNK UKN, UNK
  7. ALENDRONATE [Concomitant]
     Dosage: UNK UKN, UNK
  8. CALCIUM [Concomitant]
     Dosage: UNK UKN, UNK
  9. CITALOPRAM [Concomitant]
     Dosage: UNK UKN, UNK
  10. BUSPIRONE [Concomitant]
     Dosage: UNK UKN, UNK
  11. ISOSORBIDE [Concomitant]
     Dosage: UNK UKN, UNK
  12. FISH OIL [Concomitant]
     Dosage: UNK UKN, UNK
  13. WARFARIN [Concomitant]
     Dosage: UNK UKN, UNK
  14. ALLOPURINOL [Concomitant]
     Dosage: UNK UKN, UNK
  15. PLAVIX [Concomitant]
     Dosage: UNK UKN, UNK

REACTIONS (1)
  - Death [Fatal]
